FAERS Safety Report 20325933 (Version 2)
Quarter: 2022Q1

REPORT INFORMATION
  Report Type: Report from Study
  Country: US (occurrence: US)
  Receive Date: 20220112
  Receipt Date: 20220311
  Transmission Date: 20220423
  Serious: No
  Sender: FDA-Public Use
  Company Number: US-SA-SAC20220104000615

PATIENT
  Age: 26 Year
  Sex: Male

DRUGS (1)
  1. DUPIXENT [Suspect]
     Active Substance: DUPILUMAB
     Indication: Dermatitis atopic

REACTIONS (7)
  - Loss of personal independence in daily activities [Unknown]
  - Pain [Unknown]
  - Swelling [Unknown]
  - Insomnia [Unknown]
  - Affective disorder [Unknown]
  - Keratitis [Unknown]
  - Conjunctivitis [Unknown]
